FAERS Safety Report 9203768 (Version 1)
Quarter: 2013Q2

REPORT INFORMATION
  Report Type: Spontaneous
  Country: CN (occurrence: CN)
  Receive Date: 20130402
  Receipt Date: 20130402
  Transmission Date: 20140414
  Serious: Yes (Death, Hospitalization, Other)
  Sender: FDA-Public Use
  Company Number: CN-RANBAXY-2013RR-66406

PATIENT
  Age: 34 Year
  Sex: Male

DRUGS (4)
  1. PREDNISOLONE [Suspect]
     Indication: NEPHROTIC SYNDROME
     Dosage: 60 MG, DAILY
     Route: 065
  2. TRIAMCINOLONE [Suspect]
     Indication: NEPHROTIC SYNDROME
     Dosage: 48 MG DAILY
     Route: 065
  3. FLUCONAZOLE [Suspect]
     Indication: DISSEMINATED CRYPTOCOCCOSIS
     Dosage: 400 MG, DAILY
     Route: 042
  4. FUROSEMIDE [Concomitant]
     Indication: NEPHROTIC SYNDROME
     Dosage: 20 MG, UNK
     Route: 065

REACTIONS (3)
  - Disseminated cryptococcosis [Not Recovered/Not Resolved]
  - Staphylococcal infection [Not Recovered/Not Resolved]
  - Immune reconstitution inflammatory syndrome [Fatal]
